FAERS Safety Report 8145359-7 (Version None)
Quarter: 2012Q1

REPORT INFORMATION
  Report Type: 
  Country: None (occurrence: None)
  Receive Date: 20120217
  Receipt Date: 20120213
  Transmission Date: 20120608
  Serious: Yes (Other)
  Sender: FDA-Public Use
  Company Number: US-AMGEN-USASP2012005595

PATIENT
  Age: 65 Year
  Sex: Female
  Weight: 50.6 kg

DRUGS (19)
  1. LISINOPRIL [Concomitant]
     Dosage: UNK
     Dates: start: 20111002
  2. PROLIA [Suspect]
     Dosage: 60 MG, Q6MO
     Dates: start: 20110718
  3. LOVAZA [Concomitant]
     Dosage: UNK
     Dates: start: 20110725
  4. LUTEIN [Concomitant]
     Dosage: UNK
     Dates: start: 20110625
  5. VITAMIN K2 [Concomitant]
     Dosage: UNK
  6. CENTRUM [Concomitant]
     Dosage: UNK
  7. GARLIC [Concomitant]
     Dosage: UNK
  8. ASPIRIN [Concomitant]
     Dosage: UNK
     Dates: start: 20110725
  9. MAGNESIUM [Concomitant]
     Dosage: UNK
  10. CITRACAL [Concomitant]
     Dosage: UNK
     Dates: start: 20100518
  11. SIMVASTATIN [Concomitant]
     Dosage: UNK
     Dates: start: 20091123
  12. CALCIUM W/MAGNESIUM/ZINC [Concomitant]
  13. PROLIA [Suspect]
     Indication: OSTEOPOROSIS POSTMENOPAUSAL
     Dates: start: 20101112
  14. VITAMIN B-12 [Concomitant]
     Dosage: UNK
  15. PROPYLENE GLYCOL [Concomitant]
     Dosage: UNK
     Route: 047
     Dates: start: 20080521
  16. FOLIC ACID [Concomitant]
     Dosage: UNK
  17. VITAMIN B1 TAB [Concomitant]
     Dosage: UNK
  18. VITAMIN D [Concomitant]
     Dosage: UNK
     Dates: start: 20100420
  19. COENZYME Q10 [Concomitant]
     Dosage: UNK

REACTIONS (1)
  - LICHENIFICATION [None]
